FAERS Safety Report 5624854-6 (Version None)
Quarter: 2008Q1

REPORT INFORMATION
  Report Type: 
  Country: None (occurrence: None)
  Receive Date: 20080213
  Receipt Date: 20080207
  Transmission Date: 20080703
  Serious: Yes (Death)
  Sender: FDA-Public Use
  Company Number: NL-JNJFOC-20080202058

PATIENT
  Sex: Female
  Weight: 50 kg

DRUGS (4)
  1. RISPERDAL [Suspect]
     Indication: PSYCHOTIC DISORDER
  2. OXAZEPAM [Suspect]
     Indication: PSYCHOTIC DISORDER
  3. DETRUSITOL SR [Concomitant]
  4. REFUSAL [Concomitant]

REACTIONS (1)
  - INTENTIONAL OVERDOSE [None]
